FAERS Safety Report 8737733 (Version 2)
Quarter: 2013Q4

REPORT INFORMATION
  Report Type: Report from Study
  Country: JP (occurrence: JP)
  Receive Date: 20120822
  Receipt Date: 20131108
  Transmission Date: 20140711
  Serious: Yes (Death, Hospitalization)
  Sender: FDA-Public Use
  Company Number: JP-009507513-2012SP020113

PATIENT
  Age: 65 Year
  Sex: Male
  Weight: 52 kg

DRUGS (18)
  1. TEMODAL [Suspect]
     Indication: ANAPLASTIC ASTROCYTOMA
     Dosage: DAILY DOSAGE UNKNOWN
     Route: 048
     Dates: start: 20070117, end: 20091222
  2. TEMODAL [Suspect]
     Indication: OLIGOASTROCYTOMA
     Dosage: 200 MG/M2, QD
     Route: 041
     Dates: start: 20110221, end: 20110225
  3. NASEA [Concomitant]
     Indication: PRODUCT USED FOR UNKNOWN INDICATION
     Route: 048
     Dates: start: 20110221, end: 20110225
  4. DEPAKENE [Concomitant]
     Indication: BRAIN NEOPLASM
  5. PANALDINE [Concomitant]
     Indication: PRODUCT USED FOR UNKNOWN INDICATION
     Dosage: UNK
     Route: 048
  6. LIPITOR [Concomitant]
     Indication: PRODUCT USED FOR UNKNOWN INDICATION
     Dosage: UNK
     Route: 048
  7. ZYLORIC [Concomitant]
     Indication: PRODUCT USED FOR UNKNOWN INDICATION
     Dosage: UNK
     Route: 048
  8. BAYASPIRIN [Concomitant]
     Indication: PRODUCT USED FOR UNKNOWN INDICATION
     Dosage: UNK
     Route: 048
  9. GASTER (FAMOTIDINE) [Concomitant]
     Indication: PROPHYLAXIS
  10. RINDERON (BETAMETHASONE) [Concomitant]
     Indication: PRODUCT USED FOR UNKNOWN INDICATION
  11. TEMODAL [Suspect]
     Indication: OLIGOASTROCYTOMA
     Route: 041
     Dates: start: 20110221, end: 20110223
  12. TEMODAL [Suspect]
     Route: 041
     Dates: start: 20110301, end: 20110302
  13. NASEA [Concomitant]
     Indication: PROPHYLAXIS
     Dosage: UNK
     Route: 048
     Dates: start: 20110221, end: 20110225
  14. SOLACET D [Concomitant]
     Dosage: UNK
     Route: 041
     Dates: start: 20110224, end: 20110224
  15. VEEN 3G [Concomitant]
     Dosage: DAILY DOSAGE UNKNOWN
     Route: 041
     Dates: start: 20110224, end: 20110228
  16. DEPAKENE [Concomitant]
     Dosage: DAILY DOSAGE UNKNOWN
     Route: 048
  17. GASTER (FAMOTIDINE) [Concomitant]
     Indication: PROPHYLAXIS
     Dosage: DAILY DOSAGE UNKNOWN
     Route: 048
  18. RINDERON (BETAMETHASONE) [Concomitant]
     Dosage: DAILY DOSAGE UNKNOWN
     Route: 048

REACTIONS (3)
  - Pyrexia [Recovered/Resolved]
  - Disease progression [Fatal]
  - C-reactive protein increased [Unknown]
